FAERS Safety Report 9805840 (Version 1)
Quarter: 2014Q1

REPORT INFORMATION
  Report Type: Spontaneous
  Country: US (occurrence: None)
  Receive Date: 20140108
  Receipt Date: 20140108
  Transmission Date: 20141002
  Serious: Yes (Life-Threatening)
  Sender: FDA-Public Use
  Company Number: None

PATIENT
  Age: 67 Year
  Sex: Male
  Weight: 141.7 kg

DRUGS (2)
  1. WARFARIN [Suspect]
     Indication: PULMONARY EMBOLISM
     Route: 048
     Dates: start: 20130812, end: 20131023
  2. ASPIRIN [Suspect]
     Indication: DIABETES MELLITUS
     Route: 048
     Dates: start: 20080422

REACTIONS (2)
  - Haemoglobin decreased [None]
  - Gastric haemorrhage [None]
